FAERS Safety Report 7868735-6 (Version None)
Quarter: 2011Q4

REPORT INFORMATION
  Report Type: 
  Country: None (occurrence: None)
  Receive Date: 20111028
  Receipt Date: 20101217
  Transmission Date: 20120403
  Serious: No
  Sender: FDA-Public Use
  Company Number: US-AMGEN-USASP2010010015

PATIENT
  Age: 60 Year
  Sex: Female

DRUGS (2)
  1. ENBREL [Suspect]
     Indication: RHEUMATOID ARTHRITIS
     Route: 058
     Dates: start: 20100901
  2. METHOTREXATE (TREXALL) [Concomitant]
     Dates: start: 20080101

REACTIONS (5)
  - DRY EYE [None]
  - EYE IRRITATION [None]
  - LOCALISED INFECTION [None]
  - INFLUENZA LIKE ILLNESS [None]
  - INFLAMMATION [None]
